FAERS Safety Report 6484347-3 (Version None)
Quarter: 2009Q4

REPORT INFORMATION
  Report Type: 
  Country: None (occurrence: None)
  Receive Date: 20091203
  Receipt Date: 20091129
  Transmission Date: 20100525
  Serious: Yes (Hospitalization)
  Sender: FDA-Public Use
  Company Number: 2009AL007452

PATIENT
  Sex: Male

DRUGS (1)
  1. TICLOPIDINE HYDROCHLORIDE [Suspect]

REACTIONS (1)
  - HEPATITIS CHOLESTATIC [None]
